FAERS Safety Report 5165751-2 (Version None)
Quarter: 2006Q4

REPORT INFORMATION
  Report Type: 
  Country: None (occurrence: None)
  Receive Date: 20061128
  Receipt Date: 20061120
  Transmission Date: 20070319
  Serious: Yes (Death, Hospitalization)
  Sender: FDA-Public Use
  Company Number: PHBS2006ES12687

PATIENT
  Age: 28 Year
  Sex: Male

DRUGS (5)
  1. CARBAMAZEPINE [Suspect]
     Dosage: 40 G, ONCE/SINGLE, ORAL
     Route: 048
  2. CLOTIAPINE (CLOTIAPINE) TABLET [Suspect]
     Dosage: 0.8 G, ONCE/SINGLE, ORAL
     Route: 048
  3. OLANZAPINE [Suspect]
     Dosage: 0.56 G, ONCE/SINGLE, ORAL
     Route: 048
  4. LORAZEPAM [Suspect]
     Dosage: 25 MG, ONCE/SINGLE, ORAL
     Route: 048
  5. TOPIRAMATE [Suspect]
     Dosage: ORAL
     Route: 048

REACTIONS (11)
  - BRADYCARDIA [None]
  - BRAIN HERNIATION [None]
  - BRAIN OEDEMA [None]
  - COMA [None]
  - CONVULSION [None]
  - DRUG TOXICITY [None]
  - HAEMODIALYSIS [None]
  - MULTIPLE DRUG OVERDOSE INTENTIONAL [None]
  - RESPIRATORY DISTRESS [None]
  - SUICIDE ATTEMPT [None]
  - THERAPEUTIC AGENT TOXICITY [None]
